FAERS Safety Report 16195889 (Version 1)
Quarter: 2019Q2

REPORT INFORMATION
  Report Type: Other
  Country: US (occurrence: US)
  Receive Date: 20190415
  Receipt Date: 20190415
  Transmission Date: 20190711
  Serious: No
  Sender: FDA-Public Use
  Company Number: US-SAREPTA THERAPEUTICS, INC-SRP-000019-2019

PATIENT
  Sex: Male

DRUGS (1)
  1. EXONDYS 51 [Suspect]
     Active Substance: ETEPLIRSEN
     Dosage: UNK
     Route: 065

REACTIONS (2)
  - Reading disorder [Not Recovered/Not Resolved]
  - Memory impairment [Not Recovered/Not Resolved]
